FAERS Safety Report 9771832 (Version 5)
Quarter: 2013Q4

REPORT INFORMATION
  Report Type: Spontaneous
  Country: US (occurrence: None)
  Receive Date: 20130925
  Receipt Date: 20131118
  Transmission Date: 20140711
  Serious: Yes (Hospitalization, Other)
  Sender: FDA-Public Use
  Company Number: ADR-2013-01572

PATIENT
  Sex: Female

DRUGS (2)
  1. LIORESAL [Suspect]
     Indication: MUSCLE SPASTICITY
     Dates: start: 20070907, end: 20130911
  2. ARTANE [Suspect]

REACTIONS (12)
  - Implant site pruritus [None]
  - Implant site rash [None]
  - Surgery [None]
  - Medical device battery replacement [None]
  - Implant site pain [None]
  - Implant site erythema [None]
  - Somnolence [None]
  - Hypersensitivity [None]
  - Device power source issue [None]
  - Device physical property issue [None]
  - Device damage [None]
  - Device leakage [None]
